FAERS Safety Report 17331309 (Version 1)
Quarter: 2020Q1

REPORT INFORMATION
  Report Type: Spontaneous
  Country: US (occurrence: US)
  Receive Date: 20200108
  Receipt Date: 20200108
  Transmission Date: 20200409
  Serious: Yes (Death, Hospitalization, Disabling)
  Sender: FDA-Public Use
  Company Number: None

PATIENT
  Age: 57 Year
  Sex: Male
  Weight: 63.8 kg

DRUGS (2)
  1. NIVOLUMAB 240MG [Suspect]
     Active Substance: NIVOLUMAB
     Indication: PLEOMORPHIC LIPOSARCOMA
     Route: 042
     Dates: start: 20181003, end: 20181114
  2. IPILIMUMAB 1MG/KG [Suspect]
     Active Substance: IPILIMUMAB
     Indication: PLEOMORPHIC LIPOSARCOMA
     Route: 042
     Dates: start: 20181003, end: 20181114

REACTIONS (7)
  - Lethargy [None]
  - Hepatocellular injury [None]
  - Hypoxia [None]
  - Tachycardia [None]
  - Renal injury [None]
  - Pulmonary oedema [None]
  - Respiratory failure [None]

NARRATIVE: CASE EVENT DATE: 20191229
